FAERS Safety Report 5498826-9 (Version None)
Quarter: 2007Q4

REPORT INFORMATION
  Report Type: 
  Country: None (occurrence: None)
  Receive Date: 20071026
  Receipt Date: 20070724
  Transmission Date: 20080405
  Serious: No
  Sender: FDA-Public Use
  Company Number: A0666044A

PATIENT
  Age: 52 Year
  Sex: Female

DRUGS (1)
  1. ADVAIR DISKUS 100/50 [Suspect]
     Indication: WHEEZING
     Route: 055
     Dates: start: 20070723

REACTIONS (1)
  - WHEEZING [None]
